FAERS Safety Report 6658692-2 (Version None)
Quarter: 2010Q1

REPORT INFORMATION
  Report Type: 
  Country: None (occurrence: None)
  Receive Date: 20100330
  Receipt Date: 20100318
  Transmission Date: 20100710
  Serious: Yes (Hospitalization, Other)
  Sender: FDA-Public Use
  Company Number: PHHY2010AU17118

PATIENT
  Age: 46 Year
  Sex: Male

DRUGS (3)
  1. ZOLEDRONIC ACID [Suspect]
     Indication: HYPERCALCAEMIA
     Dosage: 4 MG, UNK
  2. DACARBAZINE [Concomitant]
     Indication: GASTRINOMA
  3. CINACALCET HYDROCHLORIDE [Concomitant]

REACTIONS (6)
  - BENIGN BONE NEOPLASM [None]
  - DISEASE PROGRESSION [None]
  - MUSCULAR WEAKNESS [None]
  - SPINAL CORD COMPRESSION [None]
  - SPINAL CORD OPERATION [None]
  - VERTEBRAL COLUMN MASS [None]
